FAERS Safety Report 23637415 (Version 1)
Quarter: 2024Q1

REPORT INFORMATION
  Report Type: Spontaneous
  Country: CA (occurrence: CA)
  Receive Date: 20240315
  Receipt Date: 20240315
  Transmission Date: 20240410
  Serious: Yes (Other)
  Sender: FDA-Public Use
  Company Number: CA-PFIZER INC-202201271097

PATIENT
  Age: 60 Year
  Sex: Female

DRUGS (6)
  1. RUXIENCE [Suspect]
     Active Substance: RITUXIMAB-PVVR
     Indication: Rheumatoid arthritis
     Dosage: 1000 MG, SINGLE DOSE
     Route: 042
     Dates: start: 20230103, end: 20230103
  2. ATENOLOL [Concomitant]
     Active Substance: ATENOLOL
     Dosage: 50 MG, DAILY
  3. GABAPENTIN [Concomitant]
     Active Substance: GABAPENTIN
     Dosage: 300 MG, 2X/DAY
  4. MELOXICAM [Concomitant]
     Active Substance: MELOXICAM
     Dosage: 15 MG, DAILY
  5. PREDNISONE [Concomitant]
     Active Substance: PREDNISONE
     Dosage: 2 MG, DAILY, TAKING FOR LAST 30 YEARS
  6. TAMOXIFEN [Concomitant]
     Active Substance: TAMOXIFEN
     Dosage: 20 MG, DAILY

REACTIONS (5)
  - Knee arthroplasty [Unknown]
  - Procedural pain [Not Recovered/Not Resolved]
  - Off label use [Unknown]
  - Product use issue [Unknown]
  - Off label use [Unknown]

NARRATIVE: CASE EVENT DATE: 20230103
